FAERS Safety Report 10026914 (Version 4)
Quarter: 2014Q2

REPORT INFORMATION
  Report Type: Report from Study
  Country: CA (occurrence: CA)
  Receive Date: 20140321
  Receipt Date: 20140414
  Transmission Date: 20141212
  Serious: Yes (Hospitalization, Other)
  Sender: FDA-Public Use
  Company Number: CA-JNJFOC-20120714572

PATIENT
  Age: 57 Year
  Sex: Female
  Weight: 53 kg

DRUGS (11)
  1. REMICADE [Suspect]
     Indication: RHEUMATOID ARTHRITIS
     Dosage: DOSE IN SERIES WAS 33
     Route: 042
     Dates: start: 20070702, end: 20120411
  2. REMICADE [Suspect]
     Indication: RHEUMATOID ARTHRITIS
     Dosage: 2ND DOSE??52 WEEKS
     Route: 042
     Dates: start: 20070803
  3. METHOTREXATE [Concomitant]
     Indication: RHEUMATOID ARTHRITIS
     Dosage: 8 X 2.5 WEEKLY
     Route: 048
     Dates: start: 19940411
  4. KETOPROFEN [Concomitant]
     Indication: RHEUMATOID ARTHRITIS
     Route: 048
     Dates: start: 199401
  5. SULFASALAZINE [Concomitant]
     Indication: RHEUMATOID ARTHRITIS
     Route: 048
     Dates: start: 20020911
  6. FOLIC ACID [Concomitant]
     Indication: RHEUMATOID ARTHRITIS
     Route: 048
  7. ACTONEL [Concomitant]
     Indication: OSTEOPOROSIS
     Route: 048
     Dates: start: 201106
  8. PLAQUENIL [Concomitant]
     Route: 048
  9. PREDNISONE [Concomitant]
     Route: 065
  10. DIPHENHYDRAMINE [Concomitant]
     Indication: PREMEDICATION
     Dosage: 15-30 MINUTES PRIOR TO INFUSION
     Route: 048
  11. ACETAMINOPHEN [Concomitant]
     Indication: PREMEDICATION
     Dosage: 15-30 MINUTES PRIOR TO INFUSION
     Route: 048

REACTIONS (1)
  - Invasive ductal breast carcinoma [Recovering/Resolving]
